FAERS Safety Report 17040116 (Version 1)
Quarter: 2019Q4

REPORT INFORMATION
  Report Type: Report from Study
  Country: CO (occurrence: CO)
  Receive Date: 20191116
  Receipt Date: 20191116
  Transmission Date: 20200122
  Serious: Yes (Hospitalization)
  Sender: FDA-Public Use
  Company Number: NVSC2019CO038280

PATIENT
  Sex: Female
  Weight: 55 kg

DRUGS (2)
  1. INSULIN [Concomitant]
     Active Substance: INSULIN NOS
     Indication: DIABETES MELLITUS
     Dosage: 51, 8 UNITS BEFORE EVERY MEAL AND 27 UNITS EVERY 24 HOURS
     Route: 065
     Dates: start: 201908
  2. GILENYA [Suspect]
     Active Substance: FINGOLIMOD HYDROCHLORIDE
     Indication: MULTIPLE SCLEROSIS
     Dosage: 0.5 MG, QD
     Route: 048
     Dates: start: 20160801

REACTIONS (1)
  - Urinary tract infection [Not Recovered/Not Resolved]
